FAERS Safety Report 9737436 (Version 2)
Quarter: 2014Q1

REPORT INFORMATION
  Report Type: Report from Study
  Country: JP (occurrence: JP)
  Receive Date: 20131206
  Receipt Date: 20140107
  Transmission Date: 20141002
  Serious: Yes (Life-Threatening)
  Sender: FDA-Public Use
  Company Number: JP-SA-2013SA125805

PATIENT
  Age: 40 Year
  Sex: Male
  Weight: 53.1 kg

DRUGS (4)
  1. THYMOGLOBULINE [Suspect]
     Indication: APLASTIC ANAEMIA
     Route: 042
     Dates: start: 20130416, end: 20130418
  2. TAKEPRON [Concomitant]
     Indication: GASTRIC ULCER
     Route: 048
  3. NEORAL [Concomitant]
     Indication: APLASTIC ANAEMIA
     Route: 048
     Dates: start: 20130416
  4. RIMEFA 3B [Concomitant]
     Indication: DERMATITIS
     Route: 042
     Dates: start: 20130409, end: 20130416

REACTIONS (1)
  - Febrile neutropenia [Recovered/Resolved]
